FAERS Safety Report 6595348-9 (Version None)
Quarter: 2010Q1

REPORT INFORMATION
  Report Type: 
  Country: None (occurrence: None)
  Receive Date: 20100223
  Receipt Date: 20100216
  Transmission Date: 20100710
  Serious: Yes (Death)
  Sender: FDA-Public Use
  Company Number: US-BIOGENIDEC-2010BI002253

PATIENT
  Sex: Male

DRUGS (1)
  1. TYSABRI [Suspect]
     Indication: MULTIPLE SCLEROSIS
     Route: 042
     Dates: start: 20070803, end: 20090904

REACTIONS (4)
  - ADVERSE DRUG REACTION [None]
  - COMPLETED SUICIDE [None]
  - MULTIPLE SCLEROSIS [None]
  - PAIN [None]
